APPROVED DRUG PRODUCT: ALKERAN
Active Ingredient: MELPHALAN HYDROCHLORIDE
Strength: EQ 50MG BASE/VIAL **Federal Register determination that product was not discontinued or withdrawn for safety or effectiveness reasons**
Dosage Form/Route: INJECTABLE;INJECTION
Application: N020207 | Product #001
Applicant: APOTEX INC
Approved: Nov 18, 1992 | RLD: Yes | RS: No | Type: DISCN